FAERS Safety Report 5335560-X (Version None)
Quarter: 2007Q2

REPORT INFORMATION
  Report Type: 
  Country: None (occurrence: None)
  Receive Date: 20070526
  Receipt Date: 20070520
  Transmission Date: 20071010
  Serious: Yes (Other)
  Sender: FDA-Public Use
  Company Number: US-PFIZER INC-2007040713

PATIENT
  Sex: Female
  Weight: 62.6 kg

DRUGS (2)
  1. LYRICA [Suspect]
     Indication: FIBROMYALGIA
  2. PHRENILIN [Concomitant]

REACTIONS (6)
  - ABDOMINAL DISTENSION [None]
  - DYSURIA [None]
  - MYALGIA [None]
  - PAIN IN EXTREMITY [None]
  - POLLAKIURIA [None]
  - WEIGHT INCREASED [None]
